FAERS Safety Report 11858527 (Version 2)
Quarter: 2016Q1

REPORT INFORMATION
  Report Type: Report from Study
  Country: US (occurrence: US)
  Receive Date: 20151222
  Receipt Date: 20160105
  Transmission Date: 20160526
  Serious: Yes (Death, Other)
  Sender: FDA-Public Use
  Company Number: US-ROCHE-1681158

PATIENT
  Sex: Male

DRUGS (2)
  1. ALTEPLASE [Suspect]
     Active Substance: ALTEPLASE
     Indication: ISCHAEMIC STROKE
     Dosage: THE INITIAL 10% IS GIVEN AS A BOLUS DURING 1 MINUTE.
     Route: 040
  2. ALTEPLASE [Suspect]
     Active Substance: ALTEPLASE
     Dosage: FOLLOWED BY AN INFUSION OF THE REMAINING 90% DOSE DURING 60 MINUTES, WITH A MAXIMUM DOSE OF 90 MG
     Route: 042

REACTIONS (2)
  - Death [Fatal]
  - Haematoma [Unknown]
